FAERS Safety Report 8026288-6 (Version None)
Quarter: 2012Q1

REPORT INFORMATION
  Report Type: 
  Country: None (occurrence: None)
  Receive Date: 20120105
  Receipt Date: 20111101
  Transmission Date: 20120608
  Serious: No
  Sender: FDA-Public Use
  Company Number: US-ABBOTT-11P-163-0870734-00

PATIENT
  Sex: Male
  Weight: 71.278 kg

DRUGS (2)
  1. SYNTHROID [Suspect]
     Indication: HYPOTHYROIDISM
     Dates: start: 20030101, end: 20110801
  2. SYNTHROID [Suspect]
     Dates: start: 20110801

REACTIONS (5)
  - ALOPECIA [None]
  - TRICHORRHEXIS [None]
  - BLOOD THYROID STIMULATING HORMONE INCREASED [None]
  - ANDROGENETIC ALOPECIA [None]
  - HAIR TEXTURE ABNORMAL [None]
